FAERS Safety Report 20297333 (Version 2)
Quarter: 2023Q4

REPORT INFORMATION
  Report Type: Spontaneous
  Country: US (occurrence: None)
  Receive Date: 20220105
  Receipt Date: 20231219
  Transmission Date: 20240110
  Serious: No
  Sender: FDA-Public Use
  Company Number: US-ROCHE-2876266

PATIENT
  Age: 63 Year
  Sex: Male

DRUGS (11)
  1. HEMLIBRA [Suspect]
     Active Substance: EMICIZUMAB-KXWH
     Indication: Factor VIII deficiency
     Dosage: USE ONE 150 MG VIAL AND TWO 60 MG VIALS PER DOSE, INJECT 1.8 ML (TOTAL DOSE 270 MG)
     Route: 058
  2. AMICAR [Concomitant]
     Active Substance: AMINOCAPROIC ACID
     Indication: Product used for unknown indication
     Route: 065
  3. TRANEXAMIC ACID [Concomitant]
     Active Substance: TRANEXAMIC ACID
     Indication: Product used for unknown indication
     Route: 065
  4. LISINOPRIL [Concomitant]
     Active Substance: LISINOPRIL
  5. HYDROCHLOROTHIAZIDE [Concomitant]
     Active Substance: HYDROCHLOROTHIAZIDE
  6. METFORMIN HYDROCHLORIDE [Concomitant]
     Active Substance: METFORMIN HYDROCHLORIDE
  7. SIMVASTATIN [Concomitant]
     Active Substance: SIMVASTATIN
  8. DULOXETINE HYDROCHLORIDE [Concomitant]
     Active Substance: DULOXETINE HYDROCHLORIDE
  9. ALKA SELTZER (UNITED STATES) [Concomitant]
  10. CETIRIZINE HCL [Concomitant]
     Active Substance: CETIRIZINE HYDROCHLORIDE
  11. ATORVASTATIN CALCIUM [Concomitant]
     Active Substance: ATORVASTATIN CALCIUM

REACTIONS (4)
  - Infusion site pain [Unknown]
  - Infusion site swelling [Unknown]
  - Arthralgia [Unknown]
  - Haemorrhage [Unknown]
